FAERS Safety Report 12542349 (Version 1)
Quarter: 2016Q3

REPORT INFORMATION
  Report Type: Spontaneous
  Country: BR (occurrence: BR)
  Receive Date: 20160708
  Receipt Date: 20160708
  Transmission Date: 20161109
  Serious: Yes (Other)
  Sender: FDA-Public Use
  Company Number: BR-TEIKOKU PHARMA USA-TPU2016-00458

PATIENT
  Sex: Male
  Weight: 87 kg

DRUGS (4)
  1. TOPERMA [Suspect]
     Active Substance: LIDOCAINE
     Indication: NEURALGIA
     Route: 065
     Dates: start: 20160620
  2. DICETEL [Concomitant]
     Active Substance: PINAVERIUM BROMIDE
  3. SUSTRATE [Concomitant]
     Active Substance: PROPATYL NITRATE
  4. SELOZOK [Concomitant]
     Active Substance: METOPROLOL SUCCINATE

REACTIONS (3)
  - Drug ineffective [Not Recovered/Not Resolved]
  - Product adhesion issue [None]
  - Pancreatitis [Unknown]
